FAERS Safety Report 9371889 (Version 1)
Quarter: 2013Q2

REPORT INFORMATION
  Report Type: Spontaneous
  Country: IT (occurrence: None)
  Receive Date: 20130618
  Receipt Date: 20130618
  Transmission Date: 20140414
  Serious: Yes (Hospitalization)
  Sender: FDA-Public Use
  Company Number: 2013036496

PATIENT
  Age: 47 Year
  Sex: Male

DRUGS (2)
  1. HIZENTRA (IMMUNOGLOBULIN HUMAN NORMAL) [Suspect]
     Indication: DEMYELINATING POLYNEUROPATHY
     Dosage: 8 G, 200 MG/ML SOLUTION FOR SUBCUTANEOUS INJECTION; ONE VIAL OF 20 ML SOLUTION
     Route: 058
     Dates: start: 20130307, end: 20130316
  2. PRAMIPEXOLE (PRAMIPEXOLE) [Concomitant]

REACTIONS (1)
  - Myocardial infarction [None]
